FAERS Safety Report 6677329-X (Version None)
Quarter: 2010Q2

REPORT INFORMATION
  Report Type: 
  Country: None (occurrence: None)
  Receive Date: 20100409
  Receipt Date: 20100409
  Transmission Date: 20101027
  Serious: No
  Sender: FDA-Public Use
  Company Number: None

PATIENT
  Age: 53 Year
  Sex: Female
  Weight: 61.2356 kg

DRUGS (1)
  1. CRESTOR [Suspect]
     Indication: BLOOD CHOLESTEROL INCREASED
     Dosage: 1 TAB (5 MG) 1X/DAY PO
     Route: 048
     Dates: start: 20090701, end: 20100101

REACTIONS (3)
  - ARTHRALGIA [None]
  - INSOMNIA [None]
  - MUSCLE SPASMS [None]
